FAERS Safety Report 6413060-3 (Version None)
Quarter: 2009Q4

REPORT INFORMATION
  Report Type: 
  Country: None (occurrence: None)
  Receive Date: 20091023
  Receipt Date: 20091023
  Transmission Date: 20100525
  Serious: Yes (Hospitalization)
  Sender: FDA-Public Use
  Company Number: None

PATIENT
  Sex: Male
  Weight: 45 kg

DRUGS (7)
  1. CYCLOPHOSPHAMIDE [Suspect]
     Dosage: 2880 MG
     Dates: start: 20090620
  2. CYTARABINE [Suspect]
     Dosage: 1830 MG
     Dates: start: 20090620
  3. DAUNORUBICIN HCL [Suspect]
     Dosage: 146 MG
     Dates: start: 20090420
  4. MERCAPTOPURINE [Suspect]
     Dosage: 3200 MG
     Dates: start: 20090920
  5. METHOTREXATE [Suspect]
     Dosage: 28855 MG
     Dates: start: 20090820
  6. PEG-L- ASPARAGINASE (K-H) [Suspect]
     Dosage: 10875 MG
     Dates: start: 20090620
  7. VINCRISTINE SULFATE [Suspect]
     Dosage: 22.7 MG
     Dates: start: 20090820

REACTIONS (3)
  - ARTHRALGIA [None]
  - MYELOID LEUKAEMIA [None]
  - NO THERAPEUTIC RESPONSE [None]
